FAERS Safety Report 4383019-9 (Version None)
Quarter: 2004Q2

REPORT INFORMATION
  Report Type: 
  Country: None (occurrence: None)
  Receive Date: 20040526
  Receipt Date: 20040325
  Transmission Date: 20050107
  Serious: Yes (Hospitalization, Other)
  Sender: FDA-Public Use
  Company Number: USA040363356

PATIENT
  Sex: Female

DRUGS (1)
  1. ZYPREXA [Suspect]

REACTIONS (1)
  - DIABETES MELLITUS [None]
